FAERS Safety Report 6131254-1 (Version None)
Quarter: 2009Q1

REPORT INFORMATION
  Report Type: 
  Country: None (occurrence: None)
  Receive Date: 20090325
  Receipt Date: 20080208
  Transmission Date: 20090719
  Serious: No
  Sender: FDA-Public Use
  Company Number: US-BRISTOL-MYERS SQUIBB COMPANY-14071179

PATIENT
  Age: 64 Year
  Sex: Male
  Weight: 94 kg

DRUGS (6)
  1. ERBITUX [Suspect]
     Indication: COLON CANCER
     Dates: start: 20071204
  2. FLUOROURACIL [Suspect]
  3. IRINOTECAN HCL [Suspect]
  4. LEUCOVORIN CALCIUM [Suspect]
  5. OXALIPLATIN [Suspect]
  6. AVASTIN [Suspect]

REACTIONS (1)
  - PARONYCHIA [None]
